FAERS Safety Report 4324246-6 (Version None)
Quarter: 2004Q1

REPORT INFORMATION
  Report Type: 
  Country: None (occurrence: None)
  Receive Date: 20040326
  Receipt Date: 20040112
  Transmission Date: 20041129
  Serious: No
  Sender: FDA-Public Use
  Company Number: US-GLAXOSMITHKLINE-A0492942A

PATIENT
  Age: 48 Year
  Sex: Female
  Weight: 89.5 kg

DRUGS (5)
  1. ADVAIR DISKUS 100/50 [Suspect]
     Indication: ASTHMA
     Route: 055
     Dates: start: 20040105, end: 20040108
  2. PULMICORT [Concomitant]
     Indication: ASTHMA
     Route: 055
  3. TENORMIN [Concomitant]
     Indication: BLOOD PRESSURE
     Route: 048
  4. VERAPAMIL [Concomitant]
     Indication: BLOOD PRESSURE
     Route: 048
  5. LORTAB [Concomitant]
     Route: 048

REACTIONS (3)
  - ASTHENIA [None]
  - NERVOUSNESS [None]
  - TREMOR [None]
